FAERS Safety Report 13224936 (Version 2)
Quarter: 2018Q3

REPORT INFORMATION
  Report Type: Report from Study
  Country: None (occurrence: US)
  Receive Date: 20170213
  Receipt Date: 20180928
  Transmission Date: 20181010
  Serious: Yes (Other)
  Sender: FDA-Public Use
  Company Number: US-ABBVIE-16K-163-1821553-00

PATIENT
  Age: 53 Year
  Sex: Male

DRUGS (2)
  1. HUMIRA [Suspect]
     Active Substance: ADALIMUMAB
     Route: 058
  2. HUMIRA [Suspect]
     Active Substance: ADALIMUMAB
     Indication: PSORIASIS
     Route: 058
     Dates: start: 201507

REACTIONS (8)
  - Procedural pain [Recovering/Resolving]
  - Incorrect dose administered [Unknown]
  - Inappropriate schedule of drug administration [Unknown]
  - Trigger finger [Recovered/Resolved]
  - Post procedural swelling [Recovering/Resolving]
  - Knee arthroplasty [Recovering/Resolving]
  - Injection site pain [Recovered/Resolved]
  - Injection site scar [Unknown]

NARRATIVE: CASE EVENT DATE: 201610
